FAERS Safety Report 15547484 (Version 1)
Quarter: 2018Q4

REPORT INFORMATION
  Report Type: Spontaneous
  Country: US (occurrence: US)
  Receive Date: 20181024
  Receipt Date: 20181024
  Transmission Date: 20190205
  Serious: No
  Sender: FDA-Public Use
  Company Number: US-SA-2018SA292864

PATIENT
  Sex: Female

DRUGS (3)
  1. HECTOROL [Suspect]
     Active Substance: DOXERCALCIFEROL
     Dosage: UNK UNK, UNK
     Route: 042
     Dates: start: 2014, end: 201608
  2. EPOGEN [Concomitant]
     Active Substance: ERYTHROPOIETIN
     Dosage: UNK UNK, UNK
     Route: 065
     Dates: start: 2014
  3. HECTOROL [Suspect]
     Active Substance: DOXERCALCIFEROL
     Dosage: UNK
     Route: 042
     Dates: start: 20181006

REACTIONS (3)
  - Blood calcium increased [Recovered/Resolved]
  - Chest discomfort [Recovered/Resolved]
  - Dyspnoea [Recovered/Resolved]

NARRATIVE: CASE EVENT DATE: 2018
